FAERS Safety Report 23297442 (Version 1)
Quarter: 2023Q4

REPORT INFORMATION
  Report Type: Spontaneous
  Country: US (occurrence: US)
  Receive Date: 20231214
  Receipt Date: 20231214
  Transmission Date: 20240109
  Serious: Yes (Other)
  Sender: FDA-Public Use
  Company Number: US-AMGEN-USASP2023220363

PATIENT
  Sex: Female

DRUGS (12)
  1. REPATHA [Suspect]
     Active Substance: EVOLOCUMAB
     Indication: Hyperlipidaemia
     Dosage: 140 MILLIGRAM, Q2WK
     Route: 058
  2. ACYCLOVIR [Concomitant]
     Active Substance: ACYCLOVIR
  3. PROTONIX [Concomitant]
     Active Substance: PANTOPRAZOLE SODIUM
  4. ELIQUIS [Concomitant]
     Active Substance: APIXABAN
  5. FLECAINIDE [Concomitant]
     Active Substance: FLECAINIDE
  6. HYDROCHLOROTHIAZIDE [Concomitant]
     Active Substance: HYDROCHLOROTHIAZIDE
  7. METOPROLOL [Concomitant]
     Active Substance: METOPROLOL
  8. SYNTHROID [Concomitant]
     Active Substance: LEVOTHYROXINE SODIUM
  9. ALBUTEROL [Concomitant]
     Active Substance: ALBUTEROL
     Dosage: (INHALER)
  10. CALCIUM [Concomitant]
     Active Substance: CALCIUM
  11. MAGNESIUM [Concomitant]
     Active Substance: MAGNESIUM
  12. VITAMIN D3 [Concomitant]
     Active Substance: CHOLECALCIFEROL

REACTIONS (9)
  - Autoimmune disorder [Unknown]
  - Herpes zoster [Unknown]
  - Viral infection [Unknown]
  - COVID-19 [Unknown]
  - Diarrhoea [Unknown]
  - Injection site pain [Recovering/Resolving]
  - Injection site pruritus [Not Recovered/Not Resolved]
  - Injection site erythema [Recovering/Resolving]
  - Injection site swelling [Recovering/Resolving]

NARRATIVE: CASE EVENT DATE: 20230101
